FAERS Safety Report 8882676 (Version 1)
Quarter: 2012Q4

REPORT INFORMATION
  Report Type: 
  Country: US (occurrence: US)
  Receive Date: 20121103
  Receipt Date: 20121103
  Transmission Date: 20130627
  Serious: Yes (Hospitalization)
  Sender: FDA-Public Use
  Company Number: US-US-EMD SERONO, INC.-7171004

PATIENT
  Age: 55 Year
  Sex: Female

DRUGS (3)
  1. REBIF [Suspect]
     Indication: PRODUCT USED FOR UNKNOWN INDICATION
     Route: 058
     Dates: start: 20050121
  2. CYMBALTA [Concomitant]
     Indication: DEPRESSION
  3. XANAX [Concomitant]
     Indication: DEPRESSION

REACTIONS (2)
  - Suicide attempt [Recovered/Resolved]
  - Depression [Not Recovered/Not Resolved]
